FAERS Safety Report 19146578 (Version 2)
Quarter: 2021Q2

REPORT INFORMATION
  Report Type: Report from Study
  Country: KR (occurrence: KR)
  Receive Date: 20210416
  Receipt Date: 20210421
  Transmission Date: 20210717
  Serious: Yes (Other)
  Sender: FDA-Public Use
  Company Number: KR-EISAI MEDICAL RESEARCH-EC-2021-091037

PATIENT
  Age: 74 Year
  Sex: Male
  Weight: 61.5 kg

DRUGS (17)
  1. ESOMEZOL [Concomitant]
     Indication: GASTROOESOPHAGEAL REFLUX DISEASE
     Route: 048
     Dates: start: 20210204, end: 20210205
  2. MUCOSTA [Concomitant]
     Active Substance: REBAMIPIDE
     Indication: GASTRITIS
     Route: 048
     Dates: start: 20210204, end: 20210223
  3. BETMIGA [Concomitant]
     Active Substance: MIRABEGRON
     Indication: PROSTATIC SPECIFIC ANTIGEN INCREASED
     Route: 048
     Dates: start: 20200120
  4. BEECOM?HEXA [Concomitant]
     Indication: ASTHENIA
     Dosage: 1 AMPULE
     Route: 042
     Dates: start: 20210204, end: 20210209
  5. AJU VESSEL DUE F SC [Concomitant]
     Indication: CATARACT
     Dosage: 3 CAPSULES (UNKNOWN DOSE)
     Route: 048
     Dates: start: 20190910
  6. XATRAL [Concomitant]
     Active Substance: ALFUZOSIN
     Indication: PROSTATIC SPECIFIC ANTIGEN INCREASED
     Route: 048
     Dates: start: 20200120
  7. LENVIMA [Suspect]
     Active Substance: LENVATINIB
     Route: 048
     Dates: start: 20210208, end: 20210307
  8. LENVIMA [Suspect]
     Active Substance: LENVATINIB
     Route: 048
     Dates: start: 20210308
  9. ASCORBIC ACID. [Concomitant]
     Active Substance: ASCORBIC ACID
     Indication: ASTHENIA
     Dosage: 100 ML/M2
     Route: 042
     Dates: start: 20210204, end: 20210209
  10. COMBIGAN [Concomitant]
     Active Substance: BRIMONIDINE TARTRATE\TIMOLOL MALEATE
     Indication: CATARACT
     Dosage: 2 DROPS
     Route: 047
     Dates: start: 20190910
  11. HEPATAMINE INJ [Concomitant]
     Indication: PROPHYLAXIS
     Route: 042
     Dates: start: 20210204, end: 20210209
  12. HEPA?MERZ [Concomitant]
     Indication: PROPHYLAXIS
     Route: 042
     Dates: start: 20210204, end: 20210209
  13. HANMI TAMS [Concomitant]
     Indication: PROSTATIC SPECIFIC ANTIGEN INCREASED
     Route: 048
     Dates: start: 20201208, end: 20210205
  14. URITOS [Concomitant]
     Active Substance: IMIDAFENACIN
     Indication: PROSTATIC SPECIFIC ANTIGEN INCREASED
     Dosage: 2 TABLETS (UNKNOWN DOSE)
     Route: 048
     Dates: start: 20201208, end: 20210205
  15. LENVIMA [Suspect]
     Active Substance: LENVATINIB
     Indication: HEPATOCELLULAR CARCINOMA
     Route: 048
     Dates: start: 20210204, end: 20210206
  16. PHAZYME [Concomitant]
     Active Substance: DIMETHICONE 410
     Indication: ABDOMINAL DISCOMFORT
     Route: 048
     Dates: start: 20210204, end: 20210223
  17. TELMIDUO TAB [Concomitant]
     Indication: HYPERTENSION
     Dosage: 80/5MG
     Route: 048
     Dates: start: 2015

REACTIONS (1)
  - Pyrexia [Recovered/Resolved]

NARRATIVE: CASE EVENT DATE: 20210205
